FAERS Safety Report 16090844 (Version 1)
Quarter: 2019Q1

REPORT INFORMATION
  Report Type: Spontaneous
  Country: AU (occurrence: AU)
  Receive Date: 20190319
  Receipt Date: 20190319
  Transmission Date: 20190418
  Serious: Yes (Hospitalization)
  Sender: FDA-Public Use
  Company Number: AU-BECTON DICKINSON-2019BDN00084

PATIENT
  Age: 49 Year
  Sex: Male

DRUGS (2)
  1. CHLORHEXIDINE-ALCOHOL [Suspect]
     Active Substance: ALCOHOL\CHLORHEXIDINE GLUCONATE
     Indication: ANTIBIOTIC PROPHYLAXIS
     Dosage: 2% CHLORHEXIDINE IN 70% ALCOHOLUNK
     Route: 061
  2. URETHRAL GEL [Concomitant]
     Route: 065

REACTIONS (1)
  - Anaphylactic reaction [Recovered/Resolved]

NARRATIVE: CASE EVENT DATE: 20120820
